FAERS Safety Report 21197247 (Version 9)
Quarter: 2025Q2

REPORT INFORMATION
  Report Type: Report from Study
  Country: US (occurrence: US)
  Receive Date: 20220810
  Receipt Date: 20250627
  Transmission Date: 20250716
  Serious: Yes (Hospitalization, Other)
  Sender: TAKEDA
  Company Number: US-TAKEDA-2022TUS054190

PATIENT
  Age: 74 Year
  Sex: Female
  Weight: 88 kg

DRUGS (59)
  1. HUMAN IMMUNOGLOBULIN G [Suspect]
     Active Substance: HUMAN IMMUNOGLOBULIN G
     Indication: Immunodeficiency common variable
     Dosage: 12 GRAM, 1/WEEK
  2. ACETAMINOPHEN [Concomitant]
     Active Substance: ACETAMINOPHEN
  3. DIPHENHYDRAMINE [Concomitant]
     Active Substance: DIPHENHYDRAMINE
  4. EPINEPHRINE [Concomitant]
     Active Substance: EPINEPHRINE
  5. RANEXA [Concomitant]
     Active Substance: RANOLAZINE
  6. PERCOCET [Concomitant]
     Active Substance: ACETAMINOPHEN\OXYCODONE HYDROCHLORIDE
  7. NUCALA [Concomitant]
     Active Substance: MEPOLIZUMAB
  8. Lmx [Concomitant]
  9. COZAAR [Concomitant]
     Active Substance: LOSARTAN POTASSIUM
  10. PREDNISONE [Concomitant]
     Active Substance: PREDNISONE
  11. SINGULAIR [Concomitant]
     Active Substance: MONTELUKAST SODIUM
  12. PROTONIX [Concomitant]
     Active Substance: PANTOPRAZOLE SODIUM
  13. FLOVENT [Concomitant]
     Active Substance: FLUTICASONE PROPIONATE
  14. ASPIRIN [Concomitant]
     Active Substance: ASPIRIN
  15. CARDIZEM [Concomitant]
     Active Substance: DILTIAZEM HYDROCHLORIDE
  16. ASPIRIN [Concomitant]
     Active Substance: ASPIRIN
  17. NITROGLYCERIN [Concomitant]
     Active Substance: NITROGLYCERIN
  18. CYCLOBENZAPRINE [Concomitant]
     Active Substance: CYCLOBENZAPRINE
  19. BYSTOLIC [Concomitant]
     Active Substance: NEBIVOLOL HYDROCHLORIDE
  20. GLUCOPHAGE [Concomitant]
     Active Substance: METFORMIN HYDROCHLORIDE
  21. TRADJENTA [Concomitant]
     Active Substance: LINAGLIPTIN
  22. TIROSINT [Concomitant]
     Active Substance: LEVOTHYROXINE SODIUM
  23. LASIX [Concomitant]
     Active Substance: FUROSEMIDE
  24. CYPROHEPTADINE [Concomitant]
     Active Substance: CYPROHEPTADINE
  25. XOPENEX [Concomitant]
     Active Substance: LEVALBUTEROL HYDROCHLORIDE
  26. VOLTAREN [Concomitant]
     Active Substance: DICLOFENAC SODIUM
  27. PLAVIX [Concomitant]
     Active Substance: CLOPIDOGREL BISULFATE
  28. WELCHOL [Concomitant]
     Active Substance: COLESEVELAM HYDROCHLORIDE
  29. LIVALO [Concomitant]
     Active Substance: PITAVASTATIN CALCIUM
  30. UROCIT-K [Concomitant]
     Active Substance: POTASSIUM CITRATE
  31. TYLENOL [Concomitant]
     Active Substance: ACETAMINOPHEN
  32. BREO ELLIPTA [Concomitant]
     Active Substance: FLUTICASONE FUROATE\VILANTEROL TRIFENATATE
  33. FLOVENT HFA [Concomitant]
     Active Substance: FLUTICASONE PROPIONATE
  34. GLUCOPHAGE XR [Concomitant]
     Active Substance: METFORMIN HYDROCHLORIDE
  35. LEVALBUTEROL HYDROCHLORIDE [Concomitant]
     Active Substance: LEVALBUTEROL HYDROCHLORIDE
  36. XYZAL [Concomitant]
     Active Substance: LEVOCETIRIZINE DIHYDROCHLORIDE
  37. LEVALBUTEROL [Concomitant]
     Active Substance: LEVALBUTEROL
  38. CYPROHEPTADINE HYDROCHLORIDE [Concomitant]
     Active Substance: CYPROHEPTADINE HYDROCHLORIDE
  39. FIORICET [Concomitant]
     Active Substance: ACETAMINOPHEN\BUTALBITAL\CAFFEINE
  40. CALCITONIN SALMON [Concomitant]
     Active Substance: CALCITONIN SALMON
  41. METFORMIN HYDROCHLORIDE [Concomitant]
     Active Substance: METFORMIN HYDROCHLORIDE
  42. SACCHAROMYCES CEREVISIAE [Concomitant]
     Active Substance: SACCHAROMYCES CEREVISIAE
  43. DIPHENHYDRAMINE HYDROCHLORIDE [Concomitant]
     Active Substance: DIPHENHYDRAMINE HYDROCHLORIDE
  44. TYLENOL EXTRA STRENGTH [Concomitant]
     Active Substance: ACETAMINOPHEN
  45. RYBELSUS [Concomitant]
     Active Substance: SEMAGLUTIDE
  46. BREZTRI [Concomitant]
     Active Substance: BUDESONIDE\FORMOTEROL\GLYCOPYRROLATE
  47. MAGNESIUM OXIDE [Concomitant]
     Active Substance: MAGNESIUM OXIDE
  48. SELENIUM [Concomitant]
     Active Substance: SELENIUM
  49. CALCIUM\VITAMIN D [Concomitant]
     Active Substance: CALCIUM\VITAMIN D
  50. LOSARTAN POTASSIUM [Concomitant]
     Active Substance: LOSARTAN POTASSIUM
  51. VITAMIN E [Concomitant]
     Active Substance: .ALPHA.-TOCOPHEROL
  52. ISOSORBIDE MONONITRATE [Concomitant]
     Active Substance: ISOSORBIDE MONONITRATE
  53. LUTEIN [Concomitant]
     Active Substance: LUTEIN
  54. Omega [Concomitant]
  55. CETIRIZINE HCL [Concomitant]
     Active Substance: CETIRIZINE HYDROCHLORIDE
  56. XOPENEX HFA [Concomitant]
     Active Substance: LEVALBUTEROL TARTRATE
  57. LEVOTHYROXINE SODIUM [Concomitant]
     Active Substance: LEVOTHYROXINE SODIUM
  58. XOLAIR [Concomitant]
     Active Substance: OMALIZUMAB
  59. VITAMIN B COMPLEX [Concomitant]
     Active Substance: CYANOCOBALAMIN\DEXPANTHENOL\NIACINAMIDE\PYRIDOXINE HYDROCHLORIDE\RIBOFLAVIN 5^-PHOSPHATE SODIUM\THIA

REACTIONS (12)
  - Compression fracture [Unknown]
  - Clostridium difficile infection [Unknown]
  - Sinusitis [Unknown]
  - Myocardial infarction [Unknown]
  - COVID-19 [Unknown]
  - Bronchitis [Unknown]
  - Wrist fracture [Unknown]
  - Fall [Unknown]
  - Drug hypersensitivity [Unknown]
  - Inappropriate schedule of product administration [Unknown]
  - Asthma [Unknown]
  - Contusion [Unknown]

NARRATIVE: CASE EVENT DATE: 20240820
